FAERS Safety Report 9974201 (Version 4)
Quarter: 2014Q1

REPORT INFORMATION
  Report Type: Report from Study
  Country: DE (occurrence: DE)
  Receive Date: 20140306
  Receipt Date: 20140331
  Transmission Date: 20141002
  Serious: Yes (Death)
  Sender: FDA-Public Use
  Company Number: DE-GLAXOSMITHKLINE-B0974687A

PATIENT
  Sex: Male

DRUGS (1)
  1. PAZOPANIB [Suspect]
     Indication: METASTATIC RENAL CELL CARCINOMA
     Dosage: 600MG PER DAY
     Route: 048
     Dates: start: 20131015, end: 20140224

REACTIONS (3)
  - Diarrhoea [Fatal]
  - Dehydration [Fatal]
  - Circulatory collapse [Fatal]
